FAERS Safety Report 6100074-6 (Version None)
Quarter: 2009Q1

REPORT INFORMATION
  Report Type: 
  Country: None (occurrence: None)
  Receive Date: 20090303
  Receipt Date: 20090225
  Transmission Date: 20090719
  Serious: Yes (Other)
  Sender: FDA-Public Use
  Company Number: B0562167A

PATIENT
  Age: 37 Year
  Sex: Female

DRUGS (5)
  1. AUGMENTIN '125' [Suspect]
     Indication: DRUG USE FOR UNKNOWN INDICATION
     Route: 065
  2. PSEUDOEPHEDRINE HCL [Concomitant]
  3. TRIPROLIDINE [Concomitant]
  4. LORATADINE [Concomitant]
  5. OXYMETAZOLINE HCL [Concomitant]

REACTIONS (4)
  - FEELING COLD [None]
  - HEADACHE [None]
  - HYPERHIDROSIS [None]
  - LOSS OF CONSCIOUSNESS [None]
